FAERS Safety Report 7196518-1 (Version None)
Quarter: 2010Q4

REPORT INFORMATION
  Report Type: 
  Country: None (occurrence: None)
  Receive Date: 20101223
  Receipt Date: 20101026
  Transmission Date: 20110411
  Serious: No
  Sender: FDA-Public Use
  Company Number: US-AMGEN-KDL445153

PATIENT

DRUGS (2)
  1. ENBREL [Suspect]
     Indication: PSORIASIS
     Dosage: 25 MG, 2 TIMES/WK
     Route: 058
  2. ENBREL [Suspect]
     Indication: PSORIATIC ARTHROPATHY

REACTIONS (11)
  - DECREASED APPETITE [None]
  - FATIGUE [None]
  - HEADACHE [None]
  - IMPAIRED HEALING [None]
  - INFLAMMATION [None]
  - LOCALISED INFECTION [None]
  - LUNG DISORDER [None]
  - MUSCULOSKELETAL CHEST PAIN [None]
  - PSORIASIS [None]
  - SCRATCH [None]
  - URINARY TRACT INFECTION [None]
